FAERS Safety Report 15326775 (Version 2)
Quarter: 2018Q3

REPORT INFORMATION
  Report Type: Spontaneous
  Country: FR (occurrence: FR)
  Receive Date: 20180828
  Receipt Date: 20180905
  Transmission Date: 20181010
  Serious: Yes (Other)
  Sender: FDA-Public Use
  Company Number: FR-MYLANLABS-2018M1063360

PATIENT
  Sex: Female

DRUGS (1)
  1. EFUDIX [Suspect]
     Active Substance: FLUOROURACIL
     Indication: PRODUCT USED FOR UNKNOWN INDICATION
     Dosage: 3 APPLICATIONS PER WEEK
     Route: 067
     Dates: start: 20180801

REACTIONS (6)
  - Vulvovaginal discomfort [Unknown]
  - Off label use [Recovered/Resolved]
  - Application site pain [Not Recovered/Not Resolved]
  - Genital haemorrhage [Recovered/Resolved]
  - Incorrect route of drug administration [Recovered/Resolved]
  - Pain [Not Recovered/Not Resolved]
